FAERS Safety Report 8511562-7 (Version None)
Quarter: 2012Q3

REPORT INFORMATION
  Report Type: 
  Country: None (occurrence: None)
  Receive Date: 20120716
  Receipt Date: 20120709
  Transmission Date: 20120928
  Serious: Yes (Hospitalization, Other)
  Sender: FDA-Public Use
  Company Number: PHHY2012FR056792

PATIENT
  Sex: Female
  Weight: 79.1 kg

DRUGS (6)
  1. LORAZEPAM [Concomitant]
     Dosage: 2 DF (2 MG) DAILY
  2. EFFEXOR [Concomitant]
     Dosage: 37.5 MG AT 1DF DAILY
  3. LAMALINE [Concomitant]
     Dosage: 3 DF DAILY
  4. VOLTAREN [Suspect]
     Indication: OSTEOARTHRITIS
     Dosage: 75 MG, QD, FOR 5 DAYS
     Route: 048
     Dates: start: 20120604, end: 20120609
  5. ZOLPIDEM [Concomitant]
     Dosage: 1 DF (10 MG) AT NIGHT
  6. NOZINAN [Concomitant]
     Dosage: 1 DF, DAILY IN THE EVENING (25 MG)

REACTIONS (18)
  - DISORIENTATION [None]
  - HYPOPHAGIA [None]
  - HYPERKALAEMIA [None]
  - DYSPNOEA [None]
  - FLUID RETENTION [None]
  - PYELONEPHRITIS [None]
  - RALES [None]
  - RENAL FAILURE ACUTE [None]
  - LUNG INFECTION [None]
  - CONFUSIONAL STATE [None]
  - CARDIAC FAILURE [None]
  - VASODILATATION [None]
  - HYPERCAPNIA [None]
  - WEIGHT DECREASED [None]
  - APHAGIA [None]
  - OEDEMA PERIPHERAL [None]
  - SOMNOLENCE [None]
  - BLOOD PRESSURE SYSTOLIC INCREASED [None]
